FAERS Safety Report 8421761-0 (Version None)
Quarter: 2012Q2

REPORT INFORMATION
  Report Type: 
  Country: None (occurrence: None)
  Receive Date: 20120601
  Receipt Date: 20120521
  Transmission Date: 20120825
  Serious: Yes (Life-Threatening, Other)
  Sender: FDA-Public Use
  Company Number: JP-2011-11747

PATIENT
  Age: 58 Year
  Sex: Male
  Weight: 60 kg

DRUGS (7)
  1. MIYA BM (CLOSTRIDIUM BUTYRICUM) [Concomitant]
  2. LOW MOLECULAR DEXTRAN (DEXTRAN 40) [Concomitant]
  3. ASPIRIN [Suspect]
     Indication: CEREBRAL INFARCTION
     Dosage: ORAL, 100 MG MILLIGRAM(S), QD, ORAL
     Route: 048
     Dates: start: 20110429
  4. ASPIRIN [Suspect]
     Indication: CEREBRAL INFARCTION
     Dosage: ORAL, 100 MG MILLIGRAM(S), QD, ORAL
     Route: 048
     Dates: start: 20110415
  5. PLETAL [Suspect]
     Indication: CEREBRAL INFARCTION
     Dosage: 100 MG MILLIGRAM(S), BID, ORAL
     Route: 048
     Dates: start: 20110427, end: 20110427
  6. FAMOTIDINE [Concomitant]
  7. CANDESARTAN CILEXETIL [Concomitant]

REACTIONS (9)
  - BLOOD PRESSURE SYSTOLIC INCREASED [None]
  - CEREBRAL INFARCTION [None]
  - CEREBRAL HAEMORRHAGE [None]
  - HEADACHE [None]
  - CONVULSION [None]
  - SUBARACHNOID HAEMORRHAGE [None]
  - VERTEBRAL ARTERY DISSECTION [None]
  - CONDITION AGGRAVATED [None]
  - NAUSEA [None]
